FAERS Safety Report 8499459-2 (Version None)
Quarter: 2012Q2

REPORT INFORMATION
  Report Type: 
  Country: None (occurrence: None)
  Receive Date: 20120405
  Receipt Date: 20100308
  Transmission Date: 20120825
  Serious: Yes (Disabling, Other)
  Sender: FDA-Public Use
  Company Number: PHEH2010US02679

PATIENT
  Age: 84 Year
  Sex: Female

DRUGS (20)
  1. BENICAR [Concomitant]
  2. LEVOXYL [Concomitant]
  3. TRAZODONE HCL [Concomitant]
  4. DYNACIRC [Concomitant]
  5. TRAMADOL HCL [Concomitant]
  6. PROZAC [Concomitant]
  7. ASCORBIC ACID [Concomitant]
  8. GARLIC (ALLIUM SATIVUM) [Concomitant]
  9. CALCIUM CARBONATE [Concomitant]
  10. MIRALAX [Concomitant]
  11. ASPIRIN [Concomitant]
  12. PERI-COLACE [Concomitant]
  13. RECLAST [Suspect]
     Indication: OSTEOPOROSIS
     Dosage: 5 MG, ONCE/SINGLE, INTRAVENOUS
     Route: 042
     Dates: start: 20100211, end: 20100211
  14. LIPITOR [Concomitant]
  15. ZIPRASIDONE HYDROCHLORIDE (GEODON) [Concomitant]
  16. PEPCID [Concomitant]
  17. DESOXYN [Concomitant]
  18. CENTRUM SILVER (ASCORBIC ACID, CALCIUM, MINERALS NOS, RETINOL, TOCOPHE [Concomitant]
  19. CYMBALTA [Concomitant]
  20. VANICREAM (MACROGOL, PROPYLENE GLYCOL, SIMETICONE, SORBIC ACID, SORBIT [Concomitant]

REACTIONS (9)
  - CHILLS [None]
  - PAIN [None]
  - ABDOMINAL PAIN [None]
  - ABDOMINAL DISTENSION [None]
  - BACK PAIN [None]
  - HEADACHE [None]
  - PAIN IN EXTREMITY [None]
  - ABDOMINAL DISCOMFORT [None]
  - INSOMNIA [None]
